FAERS Safety Report 8016635-3 (Version None)
Quarter: 2011Q4

REPORT INFORMATION
  Report Type: 
  Country: None (occurrence: None)
  Receive Date: 20111231
  Receipt Date: 20111222
  Transmission Date: 20120403
  Serious: Yes (Hospitalization)
  Sender: FDA-Public Use
  Company Number: CHPA2011GB018534

PATIENT
  Age: 62 Year
  Sex: Female

DRUGS (12)
  1. IBUPROFEN [Suspect]
     Indication: PAIN
     Dosage: UNK, UNK
     Route: 061
     Dates: start: 20111210, end: 20111213
  2. TIOPRONIN [Concomitant]
     Dosage: UNK, UNK
  3. FLUOXETINE [Concomitant]
     Dosage: UNK, UNK
  4. OMEPRAZOLE [Concomitant]
     Dosage: UNK, UNK
  5. PREDNISOLONE [Concomitant]
     Dosage: UNK, UNK
  6. AMLODIPINE [Concomitant]
     Dosage: UNK, UNK
  7. ASPIRIN [Concomitant]
     Dosage: UNK, UNK
  8. LISINOPRIL [Suspect]
     Indication: HYPERTENSION
     Dosage: UNK, UNK
     Route: 048
     Dates: start: 20020101, end: 20111213
  9. ALBUTEROL SULFATE AUTOHALER [Concomitant]
     Dosage: UNK, UNK
  10. ACETAMINOPHEN AND CODEINE PHOSPHATE [Concomitant]
     Dosage: UNK, UNK
  11. SIMVASTATIN [Concomitant]
     Dosage: UNK, UNK
  12. SYMBICORT [Concomitant]
     Dosage: UNK, UNK

REACTIONS (3)
  - DYSPNOEA [None]
  - SWOLLEN TONGUE [None]
  - ANGIOEDEMA [None]
